FAERS Safety Report 5122865-0 (Version None)
Quarter: 2006Q4

REPORT INFORMATION
  Report Type: 
  Country: None (occurrence: None)
  Receive Date: 20061005
  Receipt Date: 20060925
  Transmission Date: 20070319
  Serious: Yes (Death)
  Sender: FDA-Public Use
  Company Number: 2006106645

PATIENT
  Age: 56 Year
  Sex: Female
  Weight: 63.5036 kg

DRUGS (9)
  1. GEODON [Suspect]
     Indication: DEPRESSION
     Dosage: 80 MG (40 MG,2 IN 1 D), ORAL
     Route: 048
     Dates: start: 20060403
  2. DEPAKOTE [Suspect]
     Indication: BORDERLINE PERSONALITY DISORDER
     Dosage: (500 MG), ORAL
     Route: 048
     Dates: start: 20060831
  3. EFFEXOR - SLOW RELEASE (VENLAFAXINE HYDROCHLORIDE) [Concomitant]
  4. LORAZEPAM [Concomitant]
  5. NEURONTIN [Concomitant]
  6. LIPITOR [Concomitant]
  7. DYAZIDE [Concomitant]
  8. AMBIEN [Concomitant]
  9. SOMA [Concomitant]

REACTIONS (5)
  - CEREBROVASCULAR ACCIDENT [None]
  - COMA [None]
  - DRUG LEVEL BELOW THERAPEUTIC [None]
  - MULTI-ORGAN FAILURE [None]
  - SHOCK [None]
